FAERS Safety Report 15774947 (Version 2)
Quarter: 2019Q1

REPORT INFORMATION
  Report Type: Report from Study
  Country: BR (occurrence: BR)
  Receive Date: 20181230
  Receipt Date: 20190214
  Transmission Date: 20190417
  Serious: Yes (Other)
  Sender: FDA-Public Use
  Company Number: BR-ROCHE-2236493

PATIENT
  Sex: Male
  Weight: 76 kg

DRUGS (1)
  1. TECENTRIQ [Suspect]
     Active Substance: ATEZOLIZUMAB
     Indication: LUNG NEOPLASM MALIGNANT
     Route: 042
     Dates: start: 20180614, end: 20180906

REACTIONS (3)
  - Weight decreased [Recovering/Resolving]
  - Malaise [Recovering/Resolving]
  - Lung neoplasm [Recovering/Resolving]
